FAERS Safety Report 9380386 (Version 1)
Quarter: 2013Q3

REPORT INFORMATION
  Report Type: Spontaneous
  Country: US (occurrence: US)
  Receive Date: 20130702
  Receipt Date: 20130702
  Transmission Date: 20140515
  Serious: No
  Sender: FDA-Public Use
  Company Number: US-SUCAMPO PHARMA AMERICAS, INC-SPI201300467

PATIENT
  Age: 96 Year
  Sex: Female
  Weight: 40.36 kg

DRUGS (2)
  1. AMITIZA [Suspect]
     Indication: CONSTIPATION
     Dosage: 24 MCG, BID
     Route: 048
     Dates: start: 201306, end: 201306
  2. OXYGEN [Concomitant]
     Dosage: PERIODICAL USE

REACTIONS (2)
  - Rhinorrhoea [Recovered/Resolved]
  - Dyspnoea [Recovered/Resolved]
